FAERS Safety Report 15147561 (Version 1)
Quarter: 2018Q3

REPORT INFORMATION
  Report Type: Spontaneous
  Country: US (occurrence: US)
  Receive Date: 20180716
  Receipt Date: 20180716
  Transmission Date: 20181010
  Serious: No
  Sender: FDA-Public Use
  Company Number: US-ASTRAZENECA-2018SE88777

PATIENT
  Sex: Female
  Weight: 71.7 kg

DRUGS (1)
  1. BYDUREON [Suspect]
     Active Substance: EXENATIDE
     Indication: TYPE 2 DIABETES MELLITUS
     Route: 058

REACTIONS (4)
  - Product quality issue [Unknown]
  - Traumatic haemorrhage [Recovered/Resolved]
  - Wrong technique in product usage process [Not Recovered/Not Resolved]
  - Injury associated with device [Recovered/Resolved]
